FAERS Safety Report 6698871-1 (Version None)
Quarter: 2010Q2

REPORT INFORMATION
  Report Type: 
  Country: None (occurrence: None)
  Receive Date: 20100426
  Receipt Date: 20100426
  Transmission Date: 20101027
  Serious: No
  Sender: FDA-Public Use
  Company Number: None

PATIENT
  Age: 54 Year
  Sex: Male
  Weight: 71.6683 kg

DRUGS (1)
  1. CONCERTA [Suspect]
     Indication: ATTENTION DEFICIT/HYPERACTIVITY DISORDER
     Dosage: 54MG TWICE A DAY PO
     Route: 048
     Dates: start: 20050104, end: 20100419

REACTIONS (2)
  - DRUG EFFECT DECREASED [None]
  - UNDERDOSE [None]
